FAERS Safety Report 14623651 (Version 1)
Quarter: 2018Q1

REPORT INFORMATION
  Report Type: Spontaneous
  Country: US (occurrence: US)
  Receive Date: 20180309
  Receipt Date: 20180309
  Transmission Date: 20180509
  Serious: No
  Sender: FDA-Public Use
  Company Number: None

PATIENT
  Age: 53 Year
  Sex: Female
  Weight: 70.94 kg

DRUGS (1)
  1. BUPRENORPHINE AND NALOXONE [Suspect]
     Active Substance: BUPRENORPHINE\NALOXONE
     Indication: DRUG ABUSE
     Dosage: ROUTE - ORAL/SL
     Dates: start: 20171223, end: 20180122

REACTIONS (5)
  - Nausea [None]
  - Drug dependence [None]
  - Headache [None]
  - Vomiting [None]
  - Product dosage form issue [None]

NARRATIVE: CASE EVENT DATE: 20180115
